FAERS Safety Report 23144601 (Version 1)
Quarter: 2023Q4

REPORT INFORMATION
  Report Type: Spontaneous
  Country: PR (occurrence: PR)
  Receive Date: 20231103
  Receipt Date: 20231103
  Transmission Date: 20240109
  Serious: No
  Sender: FDA-Public Use
  Company Number: PR-PFIZER INC-202300350720

PATIENT
  Age: 59 Year
  Sex: Male

DRUGS (1)
  1. CIBINQO [Suspect]
     Active Substance: ABROCITINIB
     Indication: Dermatitis atopic
     Dosage: 100 MG
     Dates: start: 202206, end: 20231027

REACTIONS (3)
  - Urticaria [Unknown]
  - Generalised oedema [Unknown]
  - Swelling face [Unknown]

NARRATIVE: CASE EVENT DATE: 20231027
